FAERS Safety Report 5511739-9 (Version None)
Quarter: 2007Q4

REPORT INFORMATION
  Report Type: 
  Country: None (occurrence: None)
  Receive Date: 20071109
  Receipt Date: 20071106
  Transmission Date: 20080405
  Serious: Yes (Other)
  Sender: FDA-Public Use
  Company Number: US-ROXANE LABORATORIES, INC-2007-BP-23951RO

PATIENT
  Age: 40 Year
  Sex: Male

DRUGS (1)
  1. MIRTAZAPINE [Suspect]
     Indication: DEPRESSION

REACTIONS (3)
  - COMPLEX PARTIAL SEIZURES [None]
  - PHOTOPSIA [None]
  - TONIC CLONIC MOVEMENTS [None]
